FAERS Safety Report 8214455-8 (Version None)
Quarter: 2012Q1

REPORT INFORMATION
  Report Type: 
  Country: None (occurrence: None)
  Receive Date: 20120313
  Receipt Date: 20120306
  Transmission Date: 20120608
  Serious: Yes (Life-Threatening, Hospitalization, Other)
  Sender: FDA-Public Use
  Company Number: ADR-2012-00411

PATIENT
  Age: 18 Year
  Sex: Male

DRUGS (2)
  1. LIORESAL [Suspect]
     Indication: CEREBRAL PALSY
     Dosage: SEE B5
  2. LIORESAL [Suspect]
     Indication: MUSCLE SPASTICITY
     Dosage: SEE B5

REACTIONS (10)
  - ABNORMAL BEHAVIOUR [None]
  - IMPLANT SITE INDURATION [None]
  - MUSCLE TIGHTNESS [None]
  - PNEUMONIA ASPIRATION [None]
  - DEVICE DISLOCATION [None]
  - PROCEDURAL VOMITING [None]
  - IMPLANT SITE EFFUSION [None]
  - ACCIDENTAL OVERDOSE [None]
  - HYPOTENSION [None]
  - INCORRECT ROUTE OF DRUG ADMINISTRATION [None]
